FAERS Safety Report 5266904-5 (Version None)
Quarter: 2007Q1

REPORT INFORMATION
  Report Type: 
  Country: None (occurrence: None)
  Receive Date: 20070316
  Receipt Date: 20070305
  Transmission Date: 20070707
  Serious: Yes (Hospitalization, Other)
  Sender: FDA-Public Use
  Company Number: US-NOVOPROD-247467

PATIENT
  Sex: Female
  Weight: 51.247 kg

DRUGS (10)
  1. VAGIFEM [Suspect]
     Indication: MENOPAUSAL SYMPTOMS
     Dosage: UNKNOWN
     Dates: start: 20020101, end: 20030101
  2. ESTROGEN NOS [Suspect]
     Indication: MENOPAUSAL SYMPTOMS
     Dosage: UNKNOWN
  3. CENESTIN [Suspect]
     Indication: MENOPAUSAL SYMPTOMS
     Dosage: .625 MG, UNK
     Dates: start: 20020801, end: 20030801
  4. PROMETRIUM [Suspect]
     Indication: MENOPAUSAL SYMPTOMS
     Dosage: 100 MG, UNK
     Dates: start: 20020901, end: 20040401
  5. ESTRING [Suspect]
     Indication: MENOPAUSAL SYMPTOMS
     Dosage: UNKNOWN
     Dates: start: 20010701
  6. MENEST [Concomitant]
     Indication: MENOPAUSAL SYMPTOMS
     Dates: start: 20030901, end: 20040101
  7. FEMRING [Concomitant]
     Indication: MENOPAUSAL SYMPTOMS
     Dosage: UNK, UNK
     Dates: start: 20031201
  8. PROSOM [Concomitant]
     Indication: ILL-DEFINED DISORDER
     Dates: start: 19970101, end: 20060101
  9. ULTRAM [Concomitant]
     Indication: ILL-DEFINED DISORDER
     Dosage: UNK, PRN
     Dates: start: 20000101
  10. WELLBUTRIN [Concomitant]
     Indication: ILL-DEFINED DISORDER
     Dosage: INTERMITTENTLY
     Dates: start: 20020101

REACTIONS (1)
  - BREAST CANCER [None]
